FAERS Safety Report 5447206-0 (Version None)
Quarter: 2007Q3

REPORT INFORMATION
  Report Type: 
  Country: None (occurrence: None)
  Receive Date: 20070910
  Receipt Date: 20070904
  Transmission Date: 20080115
  Serious: Yes (Life-Threatening, Hospitalization)
  Sender: FDA-Public Use
  Company Number: PHEH2007US11275

PATIENT
  Age: 56 Year
  Sex: Male
  Weight: 100.23 kg

DRUGS (6)
  1. TEKTURNA [Suspect]
     Indication: HYPERTENSION
     Dosage: 150 MG, QD
     Route: 048
     Dates: start: 20070723, end: 20070801
  2. HYDROCHLOROTHIAZIDE [Suspect]
     Indication: HYPERTENSION
     Dosage: 12.5 MG, QD
     Route: 048
     Dates: start: 20070615, end: 20070809
  3. TOPROL-XL [Concomitant]
     Indication: HYPERTENSION
     Dosage: 200 MG, QD
     Route: 048
     Dates: start: 20050301
  4. XANAX [Concomitant]
     Indication: ANXIETY
     Dosage: 0.25 MG, Q8H
     Route: 048
     Dates: start: 20010101
  5. OMEGA-3 FATTY ACIDS [Concomitant]
     Indication: HYPERLIPIDAEMIA
     Dosage: 1000MG 2 TABS BID
     Route: 048
     Dates: start: 20060901
  6. LOTENSIN [Suspect]
     Indication: HYPERTENSION
     Dosage: 40 MG, QD
     Route: 048
     Dates: start: 20061101, end: 20070809

REACTIONS (5)
  - AZOTAEMIA [None]
  - BLOOD CREATININE INCREASED [None]
  - BLOOD UREA INCREASED [None]
  - FATIGUE [None]
  - HYPERKALAEMIA [None]
